FAERS Safety Report 7311684-2 (Version None)
Quarter: 2011Q1

REPORT INFORMATION
  Report Type: 
  Country: None (occurrence: None)
  Receive Date: 20110224
  Receipt Date: 20110218
  Transmission Date: 20110831
  Serious: Yes (Hospitalization, Other)
  Sender: FDA-Public Use
  Company Number: US-AMGEN-USASP2011008065

PATIENT
  Age: 30 Year
  Sex: Female
  Weight: 49.887 kg

DRUGS (8)
  1. CORTICOSTEROIDS [Concomitant]
     Indication: IDIOPATHIC THROMBOCYTOPENIC PURPURA
  2. BLOOD CELLS, PACKED HUMAN [Concomitant]
     Indication: ANAEMIA
  3. NPLATE [Suspect]
     Indication: THROMBOCYTOPENIA
     Dosage: 45 A?G, QWK
     Route: 058
     Dates: start: 20100813, end: 20110110
  4. IMMUNOGLOBULINS [Concomitant]
     Indication: IDIOPATHIC THROMBOCYTOPENIC PURPURA
  5. DECADRON [Concomitant]
     Indication: ANAEMIA
     Dosage: 40 MG, QD
  6. PREDNISONE [Concomitant]
     Indication: ANAEMIA
     Dosage: 50 MG, QD
  7. ARANESP [Concomitant]
     Indication: ANAEMIA
     Dosage: 200 A?G, QWK
  8. RITUXAN [Concomitant]
     Indication: ANAEMIA

REACTIONS (3)
  - HODGKIN'S DISEASE [None]
  - DRUG HYPERSENSITIVITY [None]
  - HAEMOGLOBIN DECREASED [None]
